FAERS Safety Report 19891508 (Version 1)
Quarter: 2021Q3

REPORT INFORMATION
  Report Type: Spontaneous
  Country: JP (occurrence: JP)
  Receive Date: 20210927
  Receipt Date: 20210927
  Transmission Date: 20211014
  Serious: Yes (Death)
  Sender: FDA-Public Use
  Company Number: NVSJ2021JP014318

PATIENT
  Age: 72 Year

DRUGS (2)
  1. EXELON PATCH [Suspect]
     Active Substance: RIVASTIGMINE
     Dosage: 18MG: PATCH10(CM2)
     Route: 062
     Dates: end: 20171015
  2. EXELON PATCH [Suspect]
     Active Substance: RIVASTIGMINE
     Indication: DEMENTIA ALZHEIMER^S TYPE
     Dosage: 9M: PATCH5(CM2)
     Route: 062
     Dates: start: 20170706

REACTIONS (3)
  - Disorganised speech [Unknown]
  - Death [Fatal]
  - Mania [Unknown]
